FAERS Safety Report 7517481-7 (Version None)
Quarter: 2011Q2

REPORT INFORMATION
  Report Type: 
  Country: None (occurrence: None)
  Receive Date: 20110601
  Receipt Date: 20110520
  Transmission Date: 20111010
  Serious: Yes (Hospitalization)
  Sender: FDA-Public Use
  Company Number: DE-AMGEN-DEUCT2011027261

PATIENT
  Age: 53 Year
  Sex: Female
  Weight: 67 kg

DRUGS (9)
  1. COLECALCIFEROL [Concomitant]
     Indication: RHEUMATOID ARTHRITIS
     Dosage: 500 MG, 2X/DAY
     Dates: start: 20100701
  2. ZOLPIDEM [Concomitant]
     Indication: SLEEP DISORDER
     Dosage: 10 MG, 1X/DAY
     Dates: start: 20100801
  3. METHOTREXATE SODIUM [Concomitant]
     Indication: RHEUMATOID ARTHRITIS
     Dosage: 15 MG ONCE/WEEK
     Dates: start: 20100701
  4. FOLIC ACID [Concomitant]
     Indication: RHEUMATOID ARTHRITIS
     Dosage: 5 MG, UNK
     Dates: start: 20100701
  5. TIM-OPHTAL [Concomitant]
     Indication: GLAUCOMA
     Dosage: 2 GTT, 2X/DAY
  6. PREDNISOLONE [Concomitant]
     Indication: RHEUMATOID ARTHRITIS
     Dosage: 5 MG, 1X/DAY
     Dates: start: 20101101
  7. NOVAMIN                            /00013301/ [Concomitant]
     Indication: PAIN
     Dosage: UP TO 4X/DAY 30 DROPS
  8. AERIUS                             /01398501/ [Concomitant]
     Indication: SEASONAL ALLERGY
     Dosage: 5 MG, 1X/DAY
  9. ETANERCEPT [Suspect]
     Indication: RHEUMATOID ARTHRITIS
     Dosage: 50 MG, QWK
     Route: 058
     Dates: start: 20101225

REACTIONS (1)
  - SALIVARY GLAND ADENOMA [None]
